FAERS Safety Report 8806567 (Version 1)
Quarter: 2012Q4

REPORT INFORMATION
  Report Type: 
  Country: US (occurrence: US)
  Receive Date: 20120925
  Receipt Date: 20120925
  Transmission Date: 20130627
  Serious: No
  Sender: FDA-Public Use
  Company Number: US-009507513-1208USA005836

PATIENT
  Age: 28 Year
  Sex: Female
  Weight: 76.19 kg

DRUGS (1)
  1. IMPLANON [Suspect]
     Indication: CONTRACEPTION
     Dosage: UNK
     Dates: start: 20090730

REACTIONS (2)
  - Unintended pregnancy [Unknown]
  - Incorrect drug administration duration [Unknown]
